FAERS Safety Report 7619939-9 (Version None)
Quarter: 2011Q3

REPORT INFORMATION
  Report Type: 
  Country: None (occurrence: None)
  Receive Date: 20110719
  Receipt Date: 20110705
  Transmission Date: 20111222
  Serious: Yes (Hospitalization)
  Sender: FDA-Public Use
  Company Number: IL-SANOFI-AVENTIS-2011SA044477

PATIENT
  Age: 84 Year
  Sex: Female
  Weight: 72 kg

DRUGS (7)
  1. BISOPROLOL [Concomitant]
     Indication: HEART RATE
  2. WARFARIN SODIUM [Concomitant]
  3. CILAZAPRIL [Concomitant]
  4. DRONEDARONE HCL [Suspect]
     Indication: ATRIAL FIBRILLATION
     Route: 048
     Dates: start: 20110505
  5. DIGOXIN [Concomitant]
     Indication: HEART RATE
  6. CILAZAPRIL [Concomitant]
  7. FUROSEMIDE [Concomitant]
     Indication: HYPERTENSION

REACTIONS (1)
  - HYPERTENSION [None]
